FAERS Safety Report 11927322 (Version 1)
Quarter: 2016Q1

REPORT INFORMATION
  Report Type: Spontaneous
  Country: US (occurrence: None)
  Receive Date: 20160115
  Receipt Date: 20160115
  Transmission Date: 20160526
  Serious: Yes (Disabling, Other)
  Sender: FDA-Public Use
  Company Number: None

PATIENT
  Age: 61 Year
  Sex: Female
  Weight: 102.06 kg

DRUGS (1)
  1. CREST 30 WHITE WHITESTRIPS LUXE [Suspect]
     Active Substance: HYDROGEN PEROXIDE
     Indication: DENTAL COSMETIC PROCEDURE

REACTIONS (11)
  - Hypoaesthesia [None]
  - Toothache [None]
  - Cellulitis [None]
  - Lip swelling [None]
  - Herpes virus infection [None]
  - Erythema [None]
  - Rash [None]
  - Herpes zoster [None]
  - Swelling [None]
  - Sensitivity of teeth [None]
  - Blister [None]

NARRATIVE: CASE EVENT DATE: 20160106
